FAERS Safety Report 5146928-9 (Version None)
Quarter: 2006Q4

REPORT INFORMATION
  Report Type: 
  Country: None (occurrence: None)
  Receive Date: 20060911
  Receipt Date: 20060707
  Transmission Date: 20070319
  Serious: Yes (Other)
  Sender: FDA-Public Use
  Company Number: 2006085947

PATIENT

DRUGS (1)
  1. ERAXIS [Suspect]
     Indication: DRUG USE FOR UNKNOWN INDICATION
     Dosage: 100 MG (100 MG, 1 IN 1 D), UNKNOWN

REACTIONS (1)
  - FUNGAL INFECTION [None]
